FAERS Safety Report 5003849-X (Version None)
Quarter: 2006Q2

REPORT INFORMATION
  Report Type: 
  Country: None (occurrence: None)
  Receive Date: 20060515
  Receipt Date: 20060502
  Transmission Date: 20061013
  Serious: Yes (Hospitalization)
  Sender: FDA-Public Use
  Company Number: 2006061472

PATIENT
  Age: 56 Year
  Sex: Male

DRUGS (4)
  1. SULFASALAZINE [Suspect]
     Indication: ILL-DEFINED DISORDER
     Dosage: 2000 MG (500 MG, 1 IN 1 D), ORAL
     Route: 048
     Dates: start: 20060117, end: 20060215
  2. PANTOPRAZOLE SODIUM [Suspect]
     Indication: ILL-DEFINED DISORDER
     Dosage: 20 MG (20 MG, 1 IN 1 D), ORAL
     Route: 048
     Dates: start: 20060117, end: 20060215
  3. DICLOFENAC SODIUM [Suspect]
     Indication: ILL-DEFINED DISORDER
     Dosage: ORAL
     Route: 048
     Dates: start: 20060117, end: 20060215
  4. PREDNISOLONE [Suspect]
     Indication: ILL-DEFINED DISORDER
     Dosage: 5 MG (5 MG), ORAL
     Route: 048
     Dates: start: 20060117, end: 20060215

REACTIONS (15)
  - DERMATITIS EXFOLIATIVE [None]
  - ECZEMA [None]
  - EOSINOPHILIA [None]
  - EPSTEIN-BARR VIRUS INFECTION [None]
  - ERYTHEMA [None]
  - FACE OEDEMA [None]
  - HEPATITIS [None]
  - LYMPHADENOPATHY [None]
  - LYMPHATIC DISORDER [None]
  - MALAISE [None]
  - MONONUCLEOSIS SYNDROME [None]
  - PYREXIA [None]
  - RASH [None]
  - TOXIC SKIN ERUPTION [None]
  - TOXOPLASMOSIS [None]
